FAERS Safety Report 24420481 (Version 2)
Quarter: 2024Q4

REPORT INFORMATION
  Report Type: Report from Study
  Country: US (occurrence: US)
  Receive Date: 20241010
  Receipt Date: 20241018
  Transmission Date: 20250115
  Serious: No
  Sender: ROCHE
  Company Number: US-ROCHE-3534385

PATIENT
  Age: 55 Year
  Sex: Male

DRUGS (4)
  1. CATHFLO ACTIVASE [Suspect]
     Active Substance: ALTEPLASE
     Indication: Cardiac arrest
     Dosage: 10 MG IN NS 0.9 50 ML IRRIGATION SYRINGE
     Route: 065
  2. CATHFLO ACTIVASE [Suspect]
     Active Substance: ALTEPLASE
     Indication: Staphylococcal sepsis
  3. CATHFLO ACTIVASE [Suspect]
     Active Substance: ALTEPLASE
     Indication: Hepatic failure
  4. CATHFLO ACTIVASE [Suspect]
     Active Substance: ALTEPLASE
     Indication: Acute respiratory failure

REACTIONS (3)
  - Off label use [Unknown]
  - No adverse event [Unknown]
  - Off label use [Unknown]
